FAERS Safety Report 5471693-5 (Version None)
Quarter: 2007Q3

REPORT INFORMATION
  Report Type: 
  Country: None (occurrence: None)
  Receive Date: 20070928
  Receipt Date: 20070406
  Transmission Date: 20080115
  Serious: No
  Sender: FDA-Public Use
  Company Number: US-BRISTOL-MYERS SQUIBB COMPANY-13741632

PATIENT
  Age: 69 Year
  Sex: Female
  Weight: 68 kg

DRUGS (4)
  1. DEFINITY [Suspect]
     Indication: STRESS ECHOCARDIOGRAM
  2. TOPROL-XL [Concomitant]
  3. DARVOCET [Concomitant]
  4. ATIVAN [Concomitant]

REACTIONS (2)
  - PRURITUS [None]
  - URTICARIA [None]
